FAERS Safety Report 12114450 (Version 1)
Quarter: 2016Q1

REPORT INFORMATION
  Report Type: Spontaneous
  Country: US (occurrence: None)
  Receive Date: 20160224
  Receipt Date: 20160224
  Transmission Date: 20160526
  Serious: Yes (Other)
  Sender: FDA-Public Use
  Company Number: None

PATIENT
  Age: 62 Year
  Sex: Female

DRUGS (1)
  1. BOSULIF [Suspect]
     Active Substance: BOSUTINIB MONOHYDRATE
     Indication: CHRONIC MYELOID LEUKAEMIA
     Route: 048
     Dates: start: 20150924

REACTIONS (5)
  - Migraine [None]
  - Pain in extremity [None]
  - Nausea [None]
  - Fibrocystic breast disease [None]
  - Chest pain [None]

NARRATIVE: CASE EVENT DATE: 20160217
